FAERS Safety Report 5418608-3 (Version None)
Quarter: 2007Q3

REPORT INFORMATION
  Report Type: 
  Country: None (occurrence: None)
  Receive Date: 20070817
  Receipt Date: 20070802
  Transmission Date: 20080115
  Serious: Yes (Other)
  Sender: FDA-Public Use
  Company Number: JP-PFIZER INC-2007065597

PATIENT
  Age: 56 Year
  Sex: Male

DRUGS (8)
  1. MIGLITOL TABLET [Suspect]
     Dosage: DAILY DOSE:150MG
     Route: 048
  2. ASPIRIN [Suspect]
     Dosage: DAILY DOSE:100MG
     Route: 048
  3. DEPAS [Suspect]
     Indication: ANXIETY
     Dosage: DAILY DOSE:1MG
     Route: 048
  4. SELBEX [Suspect]
     Dosage: DAILY DOSE:50MG
     Route: 048
  5. CANDESARTAN CILEXETIL [Suspect]
     Dosage: DAILY DOSE:8MG
     Route: 048
  6. ATELEC [Suspect]
     Dosage: DAILY DOSE:20MG
     Route: 048
  7. FAMOTIDINE [Suspect]
     Dosage: DAILY DOSE:40MG
     Route: 048
  8. PAXIL [Suspect]
     Dosage: TEXT:20MG AND 40MG
     Route: 048

REACTIONS (1)
  - LIVER DISORDER [None]
